FAERS Safety Report 6915989-6 (Version None)
Quarter: 2010Q3

REPORT INFORMATION
  Report Type: 
  Country: None (occurrence: None)
  Receive Date: 20100809
  Receipt Date: 20100809
  Transmission Date: 20110219
  Serious: Yes (Other)
  Sender: FDA-Public Use
  Company Number: None

PATIENT
  Age: 15 Year
  Sex: Female
  Weight: 81.6475 kg

DRUGS (1)
  1. MONISTAT [Suspect]
     Indication: VULVOVAGINAL MYCOTIC INFECTION
     Dosage: 1 OVULE USE ONCE VAG
     Route: 067
     Dates: start: 20100807, end: 20100807

REACTIONS (2)
  - VULVOVAGINAL BURNING SENSATION [None]
  - VULVOVAGINAL PRURITUS [None]
